FAERS Safety Report 7349901-5 (Version None)
Quarter: 2011Q1

REPORT INFORMATION
  Report Type: 
  Country: None (occurrence: None)
  Receive Date: 20110314
  Receipt Date: 20110303
  Transmission Date: 20110831
  Serious: Yes (Hospitalization)
  Sender: FDA-Public Use
  Company Number: FR-BRISTOL-MYERS SQUIBB COMPANY-15068992

PATIENT
  Age: 52 Year
  Sex: Male
  Weight: 65 kg

DRUGS (6)
  1. PRAVASTATIN SODIUM [Suspect]
     Indication: HYPERCHOLESTEROLAEMIA
     Dates: start: 19990701
  2. VIRAMUNE [Suspect]
     Indication: HIV INFECTION
     Route: 048
     Dates: start: 19990701
  3. ARIXTRA [Concomitant]
  4. ZIAGEN [Suspect]
     Indication: HIV INFECTION
     Route: 048
     Dates: start: 20000807
  5. PERINDOPRIL [Concomitant]
  6. VIDEX [Suspect]
     Indication: HIV INFECTION
     Dosage: INTERRUPTED ON 01AUG97 RESTARTED ON 01JUL99
     Route: 048
     Dates: start: 19970101, end: 20080201

REACTIONS (5)
  - CHOLESTASIS [None]
  - CHRONIC HEPATITIS [None]
  - PORTAL VEIN THROMBOSIS [None]
  - VARICES OESOPHAGEAL [None]
  - VENOOCCLUSIVE LIVER DISEASE [None]
